FAERS Safety Report 9061638 (Version 1)
Quarter: 2013Q1

REPORT INFORMATION
  Report Type: Spontaneous
  Country: US (occurrence: None)
  Receive Date: 20130118
  Receipt Date: 20130118
  Transmission Date: 20140127
  Serious: Yes (Death)
  Sender: FDA-Public Use
  Company Number: DAV-AE-DOA-13-02

PATIENT
  Age: 43 Year
  Sex: Male

DRUGS (1)
  1. DIAZEPAM [Suspect]
     Dosage: UNKNOWN,  UNKNOWN

REACTIONS (9)
  - Cardiac arrest [None]
  - Self-medication [None]
  - Grand mal convulsion [None]
  - Drug withdrawal syndrome [None]
  - Pulmonary oedema [None]
  - Toxicity to various agents [None]
  - Mitral valve incompetence [None]
  - Congestive cardiomyopathy [None]
  - Cardiac valve disease [None]
